FAERS Safety Report 6604096-8 (Version None)
Quarter: 2010Q1

REPORT INFORMATION
  Report Type: 
  Country: None (occurrence: None)
  Receive Date: 20100226
  Receipt Date: 20090520
  Transmission Date: 20100710
  Serious: No
  Sender: FDA-Public Use
  Company Number: A0785313A

PATIENT
  Age: 47 Year
  Sex: Female

DRUGS (3)
  1. LAMICTAL CD [Suspect]
     Indication: DEPRESSION
     Dosage: 200MG IN THE MORNING
     Route: 048
  2. LAMOTRIGINE [Suspect]
     Indication: DEPRESSION
     Dosage: 200MG IN THE MORNING
     Route: 048
     Dates: start: 20090515
  3. TOPAMAX [Concomitant]

REACTIONS (3)
  - PARAESTHESIA [None]
  - PRURITUS [None]
  - RASH [None]
